FAERS Safety Report 16634737 (Version 1)
Quarter: 2019Q3

REPORT INFORMATION
  Report Type: Spontaneous
  Country: US (occurrence: US)
  Receive Date: 20190726
  Receipt Date: 20190726
  Transmission Date: 20191004
  Serious: No
  Sender: FDA-Public Use
  Company Number: US-009507513-1907USA011717

PATIENT
  Sex: Female

DRUGS (1)
  1. NEXPLANON [Suspect]
     Active Substance: ETONOGESTREL
     Dosage: 68 MILLIGRAM, QUANTITY 1
     Route: 059
     Dates: start: 20170801, end: 2019

REACTIONS (4)
  - Device breakage [Recovered/Resolved]
  - Surgery [Recovered/Resolved]
  - Limb injury [Unknown]
  - Complication of device removal [Recovered/Resolved]
